FAERS Safety Report 11965432 (Version 1)
Quarter: 2016Q1

REPORT INFORMATION
  Report Type: Spontaneous
  Country: US (occurrence: US)
  Receive Date: 20160127
  Receipt Date: 20160127
  Transmission Date: 20160526
  Serious: No
  Sender: FDA-Public Use
  Company Number: US-TEVA-567890USA

PATIENT
  Sex: Male

DRUGS (1)
  1. FLUDROCORTISONE [Suspect]
     Active Substance: FLUDROCORTISONE
     Indication: HYPOTENSION
     Route: 065
     Dates: start: 20150115, end: 20150529

REACTIONS (2)
  - Pollakiuria [Recovered/Resolved]
  - Intentional product use issue [Recovered/Resolved]
